FAERS Safety Report 12555766 (Version 1)
Quarter: 2016Q3

REPORT INFORMATION
  Report Type: Spontaneous
  Country: US (occurrence: None)
  Receive Date: 20160713
  Receipt Date: 20160713
  Transmission Date: 20161109
  Serious: Yes (Hospitalization)
  Sender: FDA-Public Use
  Company Number: None

PATIENT
  Age: 78 Year
  Sex: Male
  Weight: 94.8 kg

DRUGS (4)
  1. VANCOMYCIN [Concomitant]
     Active Substance: VANCOMYCIN
  2. CEFEPIME [Concomitant]
     Active Substance: CEFEPIME HYDROCHLORIDE
  3. APIXABAN [Suspect]
     Active Substance: APIXABAN
     Indication: FEBRILE NEUTROPENIA
     Route: 048
     Dates: start: 20160616
  4. ACETAMINOPHEN. [Concomitant]
     Active Substance: ACETAMINOPHEN

REACTIONS (4)
  - Pyrexia [None]
  - White blood cell count decreased [None]
  - Lymphocyte count decreased [None]
  - Febrile neutropenia [None]

NARRATIVE: CASE EVENT DATE: 20160709
